FAERS Safety Report 5944905-9 (Version None)
Quarter: 2008Q4

REPORT INFORMATION
  Report Type: 
  Country: None (occurrence: None)
  Receive Date: 20081107
  Receipt Date: 20081106
  Transmission Date: 20090506
  Serious: Yes (Life-Threatening)
  Sender: FDA-Public Use
  Company Number: JP-ASTRAZENECA-2008AP08619

PATIENT
  Age: 73 Year
  Sex: Female
  Weight: 61 kg

DRUGS (4)
  1. DIPRIVAN [Suspect]
     Indication: INDUCTION AND MAINTENANCE OF ANAESTHESIA
     Route: 042
  2. OLMETEC [Concomitant]
     Indication: HYPERTENSION
     Route: 048
  3. PENTAZOCINE LACTATE [Concomitant]
     Route: 042
  4. SEVOFLURANE [Concomitant]
     Dosage: DOSE UNKNOWN
     Route: 055

REACTIONS (2)
  - ATRIOVENTRICULAR BLOCK COMPLETE [None]
  - ELECTROCARDIOGRAM ST SEGMENT ELEVATION [None]
